FAERS Safety Report 5140964-4 (Version None)
Quarter: 2006Q4

REPORT INFORMATION
  Report Type: 
  Country: None (occurrence: None)
  Receive Date: 20061027
  Receipt Date: 20061027
  Transmission Date: 20070319
  Serious: Yes (Hospitalization)
  Sender: FDA-Public Use
  Company Number: None

PATIENT
  Sex: Female

DRUGS (1)
  1. AZATHIOPRINE [Suspect]
     Indication: PNEUMONITIS
     Dosage: 100 MG DAILY PO
     Route: 048
     Dates: start: 20060922, end: 20061023

REACTIONS (1)
  - PANCREATITIS [None]
